FAERS Safety Report 7516226-4 (Version None)
Quarter: 2011Q2

REPORT INFORMATION
  Report Type: 
  Country: None (occurrence: None)
  Receive Date: 20110601
  Receipt Date: 20110523
  Transmission Date: 20111010
  Serious: Yes (Other)
  Sender: FDA-Public Use
  Company Number: NO-PFIZER INC-2011114977

PATIENT
  Age: 86 Year
  Sex: Female

DRUGS (6)
  1. CORDARONE [Suspect]
     Dosage: 100 TO 200 MG DAILY
     Route: 048
     Dates: start: 20100416, end: 20110408
  2. LIPITOR [Concomitant]
  3. WARFARIN [Concomitant]
  4. ATACAND [Concomitant]
  5. FOSAMAX [Concomitant]
  6. CALCIGRAN [Concomitant]

REACTIONS (3)
  - FORCED EXPIRATORY VOLUME DECREASED [None]
  - DYSPNOEA [None]
  - LUNG DISORDER [None]
